FAERS Safety Report 5251432-3 (Version None)
Quarter: 2007Q1

REPORT INFORMATION
  Report Type: 
  Country: None (occurrence: None)
  Receive Date: 20070228
  Receipt Date: 20060509
  Transmission Date: 20070707
  Serious: No
  Sender: FDA-Public Use
  Company Number: US-GLAXOSMITHKLINE-A0604719A

PATIENT
  Age: 60 Year
  Sex: Male

DRUGS (3)
  1. LAMICTAL [Suspect]
     Indication: BIPOLAR DISORDER
     Dosage: 400MG PER DAY
     Route: 048
  2. AMOXICILLIN [Suspect]
  3. LEVAQUIN [Suspect]

REACTIONS (3)
  - PRURITUS [None]
  - RASH [None]
  - SINUSITIS [None]
